FAERS Safety Report 5040627-X (Version None)
Quarter: 2006Q2

REPORT INFORMATION
  Report Type: 
  Country: None (occurrence: None)
  Receive Date: 20060628
  Receipt Date: 20060612
  Transmission Date: 20061013
  Serious: Yes (Hospitalization)
  Sender: FDA-Public Use
  Company Number: 8017444

PATIENT
  Age: 32 Year
  Sex: Female

DRUGS (1)
  1. KEPPRA [Suspect]
     Dosage: 3 G/D
     Dates: start: 20050101

REACTIONS (2)
  - CONVULSION [None]
  - DRUG INEFFECTIVE [None]
